FAERS Safety Report 22596115 (Version 2)
Quarter: 2023Q2

REPORT INFORMATION
  Report Type: Spontaneous
  Country: FR (occurrence: FR)
  Receive Date: 20230613
  Receipt Date: 20230629
  Transmission Date: 20230722
  Serious: Yes (Life-Threatening, Hospitalization, Other)
  Sender: FDA-Public Use
  Company Number: FR-ELI_LILLY_AND_COMPANY-FR202306001847

PATIENT
  Age: 71 Year
  Sex: Female
  Weight: 78 kg

DRUGS (5)
  1. ABEMACICLIB [Suspect]
     Active Substance: ABEMACICLIB
     Indication: Breast cancer
     Dosage: UNK UNK, UNKNOWN
     Route: 048
     Dates: start: 20230428, end: 20230516
  2. LETROZOLE [Concomitant]
     Active Substance: LETROZOLE
     Indication: Product used for unknown indication
     Dosage: 2.5 MG, DAILY
     Route: 048
     Dates: start: 20230428, end: 20230605
  3. VERAPAMIL [Concomitant]
     Active Substance: VERAPAMIL HYDROCHLORIDE
  4. KARDEGIC [Concomitant]
     Active Substance: ASPIRIN DL-LYSINE
  5. LEVOTHYROXINE SODIUM\LIOTHYRONINE SODIUM [Concomitant]
     Active Substance: LEVOTHYROXINE SODIUM\LIOTHYRONINE SODIUM

REACTIONS (1)
  - Hepatitis fulminant [Recovering/Resolving]

NARRATIVE: CASE EVENT DATE: 20230516
